FAERS Safety Report 8815552 (Version 2)
Quarter: 2012Q4

REPORT INFORMATION
  Report Type: 
  Country: US (occurrence: US)
  Receive Date: 20120928
  Receipt Date: 20121126
  Transmission Date: 20130627
  Serious: Yes (Hospitalization)
  Sender: FDA-Public Use
  Company Number: US-009507513-2011SP005535

PATIENT

DRUGS (3)
  1. NUVARING [Suspect]
     Indication: CONTRACEPTION
     Route: 048
     Dates: start: 20060508
  2. NUVARING [Suspect]
     Dates: start: 200712, end: 200807
  3. ACETAMINOPHEN (+) HYDROCODONE BITARTRATE [Concomitant]
     Indication: ANALGESIC THERAPY
     Dosage: UNK UNK, PRN

REACTIONS (11)
  - Deep vein thrombosis [Unknown]
  - Emotional disorder [Unknown]
  - Mental disorder [Unknown]
  - Musculoskeletal chest pain [Unknown]
  - Weight increased [Unknown]
  - Vaginal infection [Unknown]
  - Oedema peripheral [Unknown]
  - Fatigue [Unknown]
  - Head injury [Unknown]
  - Sinus disorder [Unknown]
  - Angina pectoris [Unknown]
